FAERS Safety Report 5763126-6 (Version None)
Quarter: 2008Q2

REPORT INFORMATION
  Report Type: 
  Country: None (occurrence: None)
  Receive Date: 20080609
  Receipt Date: 20080527
  Transmission Date: 20081010
  Serious: Yes (Other)
  Sender: FDA-Public Use
  Company Number: US-ELI_LILLY_AND_COMPANY-US200805005554

PATIENT
  Sex: Female

DRUGS (2)
  1. EVISTA [Suspect]
     Dosage: 60 MG, UNK
     Dates: start: 20071211
  2. PREMARIN [Concomitant]
     Dates: end: 20080101

REACTIONS (2)
  - DRUG INTERACTION [None]
  - RETINAL HAEMORRHAGE [None]
